FAERS Safety Report 15227226 (Version 1)
Quarter: 2018Q3

REPORT INFORMATION
  Report Type: Spontaneous
  Country: US (occurrence: US)
  Receive Date: 20180706
  Receipt Date: 20180706
  Transmission Date: 20181010
  Serious: Yes (Disabling, Other)
  Sender: FDA-Public Use
  Company Number: None

PATIENT
  Age: 88 Year
  Sex: Male
  Weight: 54 kg

DRUGS (8)
  1. CLONIDINE HYDROCHLORIDE. [Suspect]
     Active Substance: CLONIDINE HYDROCHLORIDE
     Indication: HYPERTENSION
     Route: 048
     Dates: start: 20180619, end: 20180702
  2. FUROSEMIDE 20 [Concomitant]
     Dates: start: 20160307
  3. METOPROLOL TARTRATE. [Concomitant]
     Active Substance: METOPROLOL TARTRATE
     Dates: start: 20160208
  4. CLONIDINE HYDROCHLORIDE. [Suspect]
     Active Substance: CLONIDINE HYDROCHLORIDE
     Indication: HYPERTENSION
     Route: 048
     Dates: start: 20180319, end: 20180618
  5. SIMVASTATIN 20 [Concomitant]
     Active Substance: SIMVASTATIN
     Dates: start: 20151207
  6. LISINOPRIL 10 [Concomitant]
     Active Substance: LISINOPRIL
     Dates: start: 20160307
  7. CLOPIDOGREL 75 [Concomitant]
     Dates: start: 20151015
  8. ISOSORBIDE MONONITRATE 60 [Concomitant]
     Dates: start: 20170513

REACTIONS (4)
  - Product substitution issue [None]
  - Hypotension [None]
  - Asthenia [None]
  - Mobility decreased [None]

NARRATIVE: CASE EVENT DATE: 20180702
